FAERS Safety Report 7272789-8 (Version None)
Quarter: 2011Q1

REPORT INFORMATION
  Report Type: 
  Country: None (occurrence: None)
  Receive Date: 20110203
  Receipt Date: 20101231
  Transmission Date: 20110831
  Serious: Yes (Other)
  Sender: FDA-Public Use
  Company Number: AT-PFIZER INC-2011024212

PATIENT
  Age: 38 Year
  Sex: Female

DRUGS (2)
  1. PANTOPRAZOLE [Suspect]
     Indication: PROPHYLAXIS
     Dosage: 20 MG, AS NEEDED
     Route: 048
     Dates: start: 20101211, end: 20101223
  2. PANTOPRAZOLE [Suspect]
     Dosage: 20 MG, 1X/DAY
     Route: 048
     Dates: start: 20101223, end: 20101229

REACTIONS (24)
  - FLATULENCE [None]
  - DIZZINESS [None]
  - SWELLING FACE [None]
  - BLOOD PRESSURE DECREASED [None]
  - DIARRHOEA [None]
  - EYE SWELLING [None]
  - HEADACHE [None]
  - NAUSEA [None]
  - MIGRAINE [None]
  - DEPRESSION [None]
  - DRY MOUTH [None]
  - DEPRESSED MOOD [None]
  - HALLUCINATION [None]
  - PHOTOSENSITIVITY REACTION [None]
  - DISORIENTATION [None]
  - SKIN DISCOLOURATION [None]
  - LIP SWELLING [None]
  - SKIN OEDEMA [None]
  - SYNCOPE [None]
  - VISUAL IMPAIRMENT [None]
  - HEART RATE DECREASED [None]
  - GASTRIC DISORDER [None]
  - ABDOMINAL PAIN [None]
  - OEDEMA MUCOSAL [None]
